FAERS Safety Report 8604479-0 (Version None)
Quarter: 2012Q3

REPORT INFORMATION
  Report Type: 
  Country: None (occurrence: None)
  Receive Date: 20120820
  Receipt Date: 20120809
  Transmission Date: 20120928
  Serious: Yes (Hospitalization)
  Sender: FDA-Public Use
  Company Number: US-BAYER-2012-039076

PATIENT
  Age: 28 Year
  Sex: Female
  Weight: 108.84 kg

DRUGS (2)
  1. YAZ [Suspect]
     Dosage: UNK
     Dates: start: 20091106, end: 20100501
  2. FLUCONAZOLE [Concomitant]
     Dosage: 150 MG, UNK
     Dates: start: 20100329

REACTIONS (7)
  - PAIN [None]
  - BILIARY DYSKINESIA [None]
  - OEDEMA PERIPHERAL [None]
  - DEEP VEIN THROMBOSIS [None]
  - ERYTHEMA [None]
  - GALLBLADDER DISORDER [None]
  - INJURY [None]
